FAERS Safety Report 20784156 (Version 2)
Quarter: 2022Q2

REPORT INFORMATION
  Report Type: Spontaneous
  Country: SE (occurrence: SE)
  Receive Date: 20220504
  Receipt Date: 20220601
  Transmission Date: 20220721
  Serious: Yes (Hospitalization)
  Sender: FDA-Public Use
  Company Number: SE-BAYER-2022P001690

PATIENT
  Age: 77 Year

DRUGS (18)
  1. XOFIGO [Suspect]
     Active Substance: RADIUM RA-223 DICHLORIDE
     Dosage: UNK
     Dates: start: 20220401
  2. PANTOPRAZOLE [Concomitant]
     Active Substance: PANTOPRAZOLE
  3. METFORMIN [Concomitant]
     Active Substance: METFORMIN HYDROCHLORIDE
  4. FARXIGA [Concomitant]
     Active Substance: DAPAGLIFLOZIN PROPANEDIOL
  5. CALCIUM CARBONATE [Concomitant]
     Active Substance: CALCIUM CARBONATE
  6. POTASSIUM CHLORIDE [Concomitant]
     Active Substance: POTASSIUM CHLORIDE
  7. ELIQUIS [Concomitant]
     Active Substance: APIXABAN
  8. FERROUS SULFATE [Concomitant]
     Active Substance: FERROUS SULFATE
  9. FUROSEMIDE [Concomitant]
     Active Substance: FUROSEMIDE
  10. EPLERENONE [Concomitant]
     Active Substance: EPLERENONE
  11. BISOPROLOL [Concomitant]
     Active Substance: BISOPROLOL
  12. RAMIPRIL [Concomitant]
     Active Substance: RAMIPRIL
  13. ROSUVASTATIN [Concomitant]
     Active Substance: ROSUVASTATIN
  14. TOLTERODINE [Concomitant]
     Active Substance: TOLTERODINE
  15. SUPREFACT [Concomitant]
     Active Substance: BUSERELIN
  16. ALENDRONATE [Concomitant]
     Active Substance: ALENDRONATE SODIUM
  17. GLYTRIN [GLYCERYL TRINITRATE] [Concomitant]
  18. ZOPICLONE [Concomitant]
     Active Substance: ZOPICLONE

REACTIONS (3)
  - Cardiac failure [Recovering/Resolving]
  - Weight increased [Recovering/Resolving]
  - Dyspnoea [Recovering/Resolving]

NARRATIVE: CASE EVENT DATE: 20220418
